FAERS Safety Report 9631315 (Version 2)
Quarter: 2013Q4

REPORT INFORMATION
  Report Type: Report from Study
  Country: US (occurrence: US)
  Receive Date: 20131018
  Receipt Date: 20131018
  Transmission Date: 20140711
  Serious: Yes (Life-Threatening, Hospitalization)
  Sender: FDA-Public Use
  Company Number: US-MERCK-1310USA004609

PATIENT
  Age: 43 Year
  Sex: Male
  Weight: 87.3 kg

DRUGS (6)
  1. VORINOSTAT [Suspect]
     Indication: ACUTE MYELOID LEUKAEMIA
     Dosage: 500 MG, TID ON DAYS 1-3 OF A 28 DAY CYCLE
     Route: 048
     Dates: start: 20130614, end: 20130616
  2. VORINOSTAT [Suspect]
     Dosage: 500 MG, TID ON DAYS 1-3 OF 28 DAY CYCLE
     Route: 048
     Dates: start: 20130923, end: 20130926
  3. CYTARABINE [Suspect]
     Indication: ACUTE MYELOID LEUKAEMIA
     Dosage: 1500 MG/M2/DAY ON DAYS 4-7 OF A 28 DAY CYCLE
     Route: 042
     Dates: start: 20130617, end: 20130620
  4. CYTARABINE [Suspect]
     Dosage: 750 MG/M2/DAY ON DAYS 4-7 OF A 28 DAY CYCLE
     Route: 042
     Dates: start: 20130926, end: 20130929
  5. IDARUBICIN [Suspect]
     Indication: ACUTE MYELOID LEUKAEMIA
     Dosage: 12 MG/M2/DAY OVER 15 MIN ON DAYS 4-6 OF A 28 DAY CYCLE
     Route: 042
     Dates: start: 20130617, end: 20130619
  6. IDARUBICIN [Suspect]
     Dosage: 8 MG/M2/DAY OVER 15 MIN ON DAYS 4-6 OF A 28 DAY CYCLE
     Route: 042
     Dates: start: 20130926, end: 20130927

REACTIONS (1)
  - Cerebrovascular accident [Recovering/Resolving]
